FAERS Safety Report 5682247-X (Version None)
Quarter: 2008Q1

REPORT INFORMATION
  Report Type: 
  Country: None (occurrence: None)
  Receive Date: 20080326
  Receipt Date: 20080326
  Transmission Date: 20080703
  Serious: No
  Sender: FDA-Public Use
  Company Number: None

PATIENT
  Age: 73 Year
  Sex: Female

DRUGS (2)
  1. DIHYDROXYVITAMIN D3 (CALCITRIOL) 0.5MG [Suspect]
     Indication: NEOPLASM MALIGNANT
     Dosage: 4 MG FOR 3 DAYS, 2 WEEKS IN A ROW
     Dates: start: 20080308, end: 20080318
  2. OXYCODONE HCL [Concomitant]

REACTIONS (3)
  - ASTHENIA [None]
  - DEHYDRATION [None]
  - DIARRHOEA [None]
